FAERS Safety Report 9210572 (Version 3)
Quarter: 2013Q4

REPORT INFORMATION
  Report Type: Spontaneous
  Country: US (occurrence: US)
  Receive Date: 20130404
  Receipt Date: 20131029
  Transmission Date: 20140711
  Serious: Yes (Hospitalization)
  Sender: FDA-Public Use
  Company Number: US-BAYER-2013-040208

PATIENT
  Age: 25 Year
  Sex: Female

DRUGS (4)
  1. YAZ [Suspect]
     Indication: CONTRACEPTION
     Dosage: UNK
     Route: 048
     Dates: start: 20080626, end: 20090110
  2. ALBUTEROL [Concomitant]
  3. IBUPROFEN [Concomitant]
  4. AMBIEN [Concomitant]

REACTIONS (10)
  - Gallbladder disorder [None]
  - Biliary dyskinesia [None]
  - Pain [None]
  - Injury [None]
  - Emotional distress [None]
  - Anxiety [None]
  - Psychological trauma [None]
  - Nausea [None]
  - Headache [None]
  - Fatigue [None]
